FAERS Safety Report 15890990 (Version 4)
Quarter: 2019Q2

REPORT INFORMATION
  Report Type: Spontaneous
  Country: DE (occurrence: DE)
  Receive Date: 20190130
  Receipt Date: 20190517
  Transmission Date: 20190711
  Serious: Yes (Hospitalization, Other)
  Sender: FDA-Public Use
  Company Number: PHHY2019DE019178

PATIENT
  Sex: Male
  Weight: 99 kg

DRUGS (8)
  1. VALSARTAN. [Suspect]
     Active Substance: VALSARTAN
     Indication: HYPERTENSION
     Dosage: 160 MG, QD
     Route: 065
     Dates: start: 201402, end: 201506
  2. VALSARTAN AND HYDROCHLOROTHIAZIDE [Concomitant]
     Active Substance: HYDROCHLOROTHIAZIDE\VALSARTAN
     Indication: PRODUCT USED FOR UNKNOWN INDICATION
     Dosage: 1 DF, UNK
     Route: 065
     Dates: start: 20171018, end: 20171018
  3. VALSARTAN AND HYDROCHLOROTHIAZIDE [Concomitant]
     Active Substance: HYDROCHLOROTHIAZIDE\VALSARTAN
     Dosage: 1 DF, UNK
     Route: 065
     Dates: start: 20171020, end: 20171024
  4. STEROFUNDIN [Concomitant]
     Active Substance: CALCIUM CHLORIDE\MAGNESIUM CHLORIDE\POTASSIUM CHLORIDE\SODIUM ACETATE\SODIUM CHLORIDE
     Indication: PRODUCT USED FOR UNKNOWN INDICATION
     Dosage: 100 ML, UNK
     Route: 065
     Dates: start: 20171020, end: 20171020
  5. METOPROLOL. [Concomitant]
     Active Substance: METOPROLOL
     Indication: HYPERTENSION
     Dosage: 95 MG, QD
     Route: 048
  6. METOHEXAL SUCC [Concomitant]
     Active Substance: METOPROLOL SUCCINATE
     Indication: PRODUCT USED FOR UNKNOWN INDICATION
     Dosage: UNK
     Route: 065
     Dates: start: 2014
  7. METOPROLOLSUCCINAAT [Concomitant]
     Active Substance: METOPROLOL SUCCINATE
     Indication: PRODUCT USED FOR UNKNOWN INDICATION
     Dosage: 1 DF, UNK
     Route: 065
     Dates: start: 20171018, end: 20171024
  8. VALSARTAN 1 A PHARMA [Suspect]
     Active Substance: VALSARTAN
     Indication: HYPERTENSION
     Dosage: 320 MG, QD
     Route: 065
     Dates: start: 2015, end: 201807

REACTIONS (23)
  - Cholecystitis [Recovered/Resolved]
  - Blood creatine phosphokinase increased [Unknown]
  - PO2 increased [Unknown]
  - Helicobacter gastritis [Unknown]
  - Haematocrit decreased [Unknown]
  - Gastrointestinal submucosal tumour [Recovered/Resolved]
  - Productive cough [Unknown]
  - PCO2 decreased [Unknown]
  - Cholelithiasis [Unknown]
  - Pain [Unknown]
  - Haemoglobin decreased [Unknown]
  - Blood potassium decreased [Unknown]
  - Back pain [Unknown]
  - Cholangitis [Unknown]
  - Duodenitis [Unknown]
  - White blood cell count increased [Unknown]
  - Oxygen saturation increased [Unknown]
  - Hypoaesthesia [Unknown]
  - Platelet count increased [Unknown]
  - pH body fluid increased [Unknown]
  - Arteriosclerosis coronary artery [Unknown]
  - Blood sodium decreased [Unknown]
  - Night sweats [Unknown]

NARRATIVE: CASE EVENT DATE: 2017
